FAERS Safety Report 10273424 (Version 2)
Quarter: 2014Q3

REPORT INFORMATION
  Report Type: Spontaneous
  Country: IT (occurrence: None)
  Receive Date: 20140630
  Receipt Date: 20140814
  Transmission Date: 20150326
  Serious: Yes (Hospitalization)
  Sender: FDA-Public Use
  Company Number: 2014AP003438

PATIENT
  Age: 83 Year
  Sex: Male

DRUGS (11)
  1. ADALAT CRONO (NIFEDIPINE) MODIFIED-RELEASE TABLET [Concomitant]
  2. SILODYX (SILODOSIN) [Concomitant]
  3. KOLIBRI [Suspect]
     Active Substance: ACETAMINOPHEN\TRAMADOL HYDROCHLORIDE
     Indication: PRODUCT USED FOR UNKNOWN INDICATION
     Dosage: 1 DF, QD
     Dates: start: 201309
  4. PROVISACOR (ROSUVASTATIN CALCIUM) TABLET [Concomitant]
  5. AVODART (DUTASTERIDE) [Concomitant]
  6. LANSOX (LANSOOPRAZOLE) [Concomitant]
  7. VASORETIC (ENALAPRIL MALEATE, ENALAPRIL MALEATE, HYDROCHLOROTHIAZIDE) [Concomitant]
  8. LEVOFLOXACIN (LEVOFLOXACIN) UNKNOWN, 1000MG [Suspect]
     Active Substance: LEVOFLOXACIN
     Indication: BRONCHITIS
     Route: 048
     Dates: start: 20131215
  9. TICLOPIDINA [Suspect]
     Active Substance: TICLOPIDINE
     Indication: PRODUCT USED FOR UNKNOWN INDICATION
     Dosage: 2 DF, QD
     Dates: start: 20131125, end: 20131215
  10. ZYLORIC (ALLOPURINOL) [Concomitant]
     Active Substance: ALLOPURINOL
  11. CONGESCOR (BISOPROLOL FUMARATE) [Concomitant]

REACTIONS (5)
  - Dermatitis exfoliative [None]
  - Tendon pain [None]
  - Gait disturbance [None]
  - Pruritus [None]
  - Activities of daily living impaired [None]

NARRATIVE: CASE EVENT DATE: 20140206
